FAERS Safety Report 20813814 (Version 1)
Quarter: 2022Q2

REPORT INFORMATION
  Report Type: Spontaneous
  Country: US (occurrence: None)
  Receive Date: 20220510
  Receipt Date: 20220510
  Transmission Date: 20220720
  Serious: Yes (Hospitalization)
  Sender: FDA-Public Use
  Company Number: None

PATIENT
  Age: 73 Year
  Sex: Female
  Weight: 76.05 kg

DRUGS (1)
  1. ABECMA [Suspect]
     Active Substance: IDECABTAGENE VICLEUCEL
     Indication: Plasma cell myeloma
     Route: 042
     Dates: start: 20220419, end: 20220419

REACTIONS (9)
  - Neurotoxicity [None]
  - Hypoxia [None]
  - Depressed level of consciousness [None]
  - Cytokine release syndrome [None]
  - Infusion related reaction [None]
  - Blood lactic acid increased [None]
  - Haemophagocytic lymphohistiocytosis [None]
  - Somnolence [None]
  - Confusional state [None]

NARRATIVE: CASE EVENT DATE: 20220420
